FAERS Safety Report 6915766-6 (Version None)
Quarter: 2010Q3

REPORT INFORMATION
  Report Type: 
  Country: None (occurrence: None)
  Receive Date: 20100810
  Receipt Date: 20091214
  Transmission Date: 20110219
  Serious: No
  Sender: FDA-Public Use
  Company Number: A0835524A

PATIENT
  Age: 34 Year
  Sex: Female

DRUGS (3)
  1. PAXIL [Suspect]
     Indication: ANXIETY
     Route: 048
     Dates: start: 20070501
  2. PLAN B [Suspect]
     Indication: CONTRACEPTION
     Dosage: 1.5MG PER DAY
     Route: 048
     Dates: start: 20091018, end: 20091018
  3. PLAN B [Suspect]
     Dosage: 1.5MG PER DAY
     Route: 048
     Dates: start: 20091118, end: 20091118

REACTIONS (5)
  - BREAST TENDERNESS [None]
  - DRY MOUTH [None]
  - DYSMENORRHOEA [None]
  - DYSPEPSIA [None]
  - FATIGUE [None]
